FAERS Safety Report 8541781-5 (Version None)
Quarter: 2012Q3

REPORT INFORMATION
  Report Type: 
  Country: None (occurrence: None)
  Receive Date: 20120726
  Receipt Date: 20110824
  Transmission Date: 20120928
  Serious: No
  Sender: FDA-Public Use
  Company Number: US-ASTRAZENECA-2011SE50962

PATIENT
  Age: 63 Year
  Sex: Female
  Weight: 72.6 kg

DRUGS (4)
  1. SYMBOLTA [Concomitant]
  2. SEROQUEL XR [Suspect]
     Indication: BIPOLAR I DISORDER
     Route: 048
     Dates: start: 20080101
  3. TOPRAMAX [Concomitant]
  4. LENICTIL [Concomitant]

REACTIONS (3)
  - DRUG DOSE OMISSION [None]
  - EUPHORIC MOOD [None]
  - INSOMNIA [None]
